FAERS Safety Report 10220671 (Version 5)
Quarter: 2014Q3

REPORT INFORMATION
  Report Type: Report from Study
  Country: SE (occurrence: SE)
  Receive Date: 20140606
  Receipt Date: 20140924
  Transmission Date: 20150326
  Serious: Yes (Hospitalization)
  Sender: FDA-Public Use
  Company Number: SE-ROCHE-1412484

PATIENT
  Age: 69 Year
  Sex: Female
  Weight: 75 kg

DRUGS (2)
  1. TOPOTECAN [Suspect]
     Active Substance: TOPOTECAN\TOPOTECAN HYDROCHLORIDE
     Indication: OVARIAN CANCER
     Dosage: LAST DOSE PRIOR TO THE EVENT: 16/MAY/2014.?DAY 1.5 THREE WEEKS.
     Route: 042
     Dates: start: 20140512, end: 20140528
  2. PERTUZUMAB [Suspect]
     Active Substance: PERTUZUMAB
     Indication: OVARIAN CANCER
     Dosage: LOADING DOSE
     Route: 042

REACTIONS (1)
  - Sepsis [Recovered/Resolved]

NARRATIVE: CASE EVENT DATE: 20140528
